FAERS Safety Report 10252645 (Version 1)
Quarter: 2014Q2

REPORT INFORMATION
  Report Type: Spontaneous
  Country: US (occurrence: None)
  Receive Date: 20140620
  Receipt Date: 20140620
  Transmission Date: 20141212
  Serious: Yes (Other)
  Sender: FDA-Public Use
  Company Number: None

PATIENT
  Age: 62 Year
  Sex: Female

DRUGS (1)
  1. HEXALEN [Suspect]
     Indication: OVARIAN CANCER
     Dosage: 350MG, QD X7 DAYS ON + 7 DAYS OFF, PO?
     Route: 048
     Dates: start: 20130309, end: 20140227

REACTIONS (3)
  - Neuropathy peripheral [None]
  - Condition aggravated [None]
  - Drug ineffective [None]
